FAERS Safety Report 16171773 (Version 1)
Quarter: 2019Q2

REPORT INFORMATION
  Report Type: Spontaneous
  Country: CN (occurrence: CN)
  Receive Date: 20190408
  Receipt Date: 20190408
  Transmission Date: 20190711
  Serious: Yes (Hospitalization, Other)
  Sender: FDA-Public Use
  Company Number: CN-BAXTER-2019BAX006834

PATIENT
  Age: 49 Year
  Sex: Male
  Weight: 65 kg

DRUGS (9)
  1. ENDOXAN [Suspect]
     Active Substance: CYCLOPHOSPHAMIDE
     Indication: BURKITT^S LYMPHOMA
     Dosage: 0.9%NS 100ML+CYCLOPHOSPHAMIDE 0.3G IVGTT QD
     Route: 041
     Dates: start: 20190309, end: 20190311
  2. CYTARABINE. [Suspect]
     Active Substance: CYTARABINE
     Indication: BURKITT^S LYMPHOMA
     Route: 037
     Dates: start: 20190308, end: 20190308
  3. METHOTREXATE. [Suspect]
     Active Substance: METHOTREXATE
     Indication: BURKITT^S LYMPHOMA
     Route: 037
     Dates: start: 20190308, end: 20190308
  4. 0.9% SODIUM CHLORIDE INJECTION [Suspect]
     Active Substance: SODIUM CHLORIDE
     Indication: MEDICATION DILUTION
     Dosage: 0.9%NS 100ML+RITUXIMAB 100 MG IVGTT QD
     Route: 041
     Dates: start: 20190308, end: 20190308
  5. 0.9% SODIUM CHLORIDE INJECTION [Suspect]
     Active Substance: SODIUM CHLORIDE
     Dosage: 0.9%NS 500ML+RITUXIMAB 600MG IVGTT QD
     Route: 041
     Dates: start: 20190308, end: 20190308
  6. PREDNISONE ACETATE [Suspect]
     Active Substance: PREDNISONE ACETATE
     Indication: BURKITT^S LYMPHOMA
     Route: 048
     Dates: start: 20190309
  7. 0.9% SODIUM CHLORIDE INJECTION [Suspect]
     Active Substance: SODIUM CHLORIDE
     Dosage: 0.9%NS 100ML+CYCLOPHOSPHAMIDE 0.3G IVGTT QD
     Route: 041
     Dates: start: 20190309, end: 20190311
  8. RITUXIMAB. [Suspect]
     Active Substance: RITUXIMAB
     Indication: BURKITT^S LYMPHOMA
     Dosage: 0.9%NS 100ML+RITUXIMAB 100 MG IVGTT QD,
     Route: 041
     Dates: start: 20190308, end: 20190308
  9. RITUXIMAB. [Suspect]
     Active Substance: RITUXIMAB
     Dosage: 0.9%NS 500ML+RITUXIMAB 600MG IVGTT QD
     Route: 041
     Dates: start: 20190308, end: 20190308

REACTIONS (3)
  - Thrombocytopenia [Recovering/Resolving]
  - Hepatitis [Unknown]
  - Hepatic function abnormal [Recovering/Resolving]

NARRATIVE: CASE EVENT DATE: 20190310
